FAERS Safety Report 4761863-3 (Version None)
Quarter: 2005Q3

REPORT INFORMATION
  Report Type: 
  Country: None (occurrence: None)
  Receive Date: 20050906
  Receipt Date: 20050822
  Transmission Date: 20060218
  Serious: Yes (Other)
  Sender: FDA-Public Use
  Company Number: TR-BRISTOL-MYERS SQUIBB COMPANY-13085295

PATIENT
  Age: 65 Year
  Sex: Female

DRUGS (6)
  1. PRAVASTATIN SODIUM [Suspect]
  2. COLCHICINE [Interacting]
     Indication: GOUT
  3. LOSARTAN POTASSIUM [Concomitant]
  4. FUROSEMIDE [Concomitant]
  5. SPIRONOLACTONE [Concomitant]
  6. ASPIRIN [Concomitant]

REACTIONS (2)
  - DRUG INTERACTION [None]
  - MUSCULAR WEAKNESS [None]
